FAERS Safety Report 9708066 (Version 1)
Quarter: 2013Q4

REPORT INFORMATION
  Report Type: Spontaneous
  Country: SA (occurrence: None)
  Receive Date: 20131121
  Receipt Date: 20131121
  Transmission Date: 20140711
  Serious: Yes (Death, Hospitalization)
  Sender: FDA-Public Use
  Company Number: 2013110046

PATIENT
  Age: 41 Year
  Sex: Male

DRUGS (2)
  1. D-PENICILLAMINE (PENICILLAMINE) [Suspect]
     Indication: HEPATO-LENTICULAR DEGENERATION
  2. ZINC [Suspect]
     Indication: HEPATO-LENTICULAR DEGENERATION
     Route: 048

REACTIONS (2)
  - Metastases to lung [None]
  - Hepatocellular carcinoma [None]
